FAERS Safety Report 8467346-1 (Version None)
Quarter: 2012Q2

REPORT INFORMATION
  Report Type: 
  Country: None (occurrence: None)
  Receive Date: 20120626
  Receipt Date: 20120621
  Transmission Date: 20120825
  Serious: No
  Sender: FDA-Public Use
  Company Number: US-BAYER-2012-062827

PATIENT
  Age: 82 Year
  Sex: Female

DRUGS (5)
  1. VITAMIN TAB [Concomitant]
  2. NEXIUM [Concomitant]
  3. TIAZAC [Concomitant]
  4. ALEVE (CAPLET) [Suspect]
     Indication: BACK PAIN
     Dosage: 1 DF, PRN
     Route: 048
     Dates: start: 20120620
  5. CALCIUM [Concomitant]

REACTIONS (1)
  - BACK PAIN [None]
